FAERS Safety Report 16879542 (Version 5)
Quarter: 2019Q4

REPORT INFORMATION
  Report Type: Spontaneous
  Country: JP (occurrence: JP)
  Receive Date: 20191003
  Receipt Date: 20191029
  Transmission Date: 20200122
  Serious: Yes (Death, Life-Threatening, Hospitalization, Other)
  Sender: FDA-Public Use
  Company Number: JP-PFIZER INC-2019421959

PATIENT
  Age: 55 Year
  Sex: Female
  Weight: 57 kg

DRUGS (5)
  1. AVELOX [Concomitant]
     Active Substance: MOXIFLOXACIN HYDROCHLORIDE
     Indication: C-REACTIVE PROTEIN INCREASED
     Dosage: 400 UNK, 1X/DAY
     Dates: start: 20190920, end: 20190925
  2. IBRANCE [Suspect]
     Active Substance: PALBOCICLIB
     Dosage: 50 MG, DAILY (3 WEEK-ON AND 1 WEEK-OFF)
     Route: 048
     Dates: start: 20190830, end: 20190920
  3. LETROZOLE. [Suspect]
     Active Substance: LETROZOLE
     Indication: BREAST CANCER
     Dosage: 2.5 MG, 1X/DAY
     Dates: start: 20190802, end: 20190928
  4. E KEPPRA [Suspect]
     Active Substance: LEVETIRACETAM
     Dosage: 1000 MG, 3X/DAY
     Dates: start: 20190802, end: 20190928
  5. IBRANCE [Suspect]
     Active Substance: PALBOCICLIB
     Indication: BREAST CANCER RECURRENT
     Dosage: 75 MG, DAILY (3 WEEK-ON AND 1 WEEK-OFF)
     Route: 048
     Dates: start: 20190802, end: 20190815

REACTIONS (12)
  - Hepatic failure [Unknown]
  - White blood cell count decreased [Unknown]
  - Neoplasm progression [Unknown]
  - Platelet count decreased [Fatal]
  - Liver function test increased [Fatal]
  - Interstitial lung disease [Unknown]
  - Red blood cell count decreased [Unknown]
  - Melaena [Fatal]
  - Haemoglobin decreased [Unknown]
  - Disseminated intravascular coagulation [Fatal]
  - Pancytopenia [Fatal]
  - Delirium [Unknown]

NARRATIVE: CASE EVENT DATE: 20190802
